FAERS Safety Report 6763461-9 (Version None)
Quarter: 2010Q2

REPORT INFORMATION
  Report Type: 
  Country: None (occurrence: None)
  Receive Date: 20100608
  Receipt Date: 20100601
  Transmission Date: 20101027
  Serious: Yes (Death)
  Sender: FDA-Public Use
  Company Number: TPA2010A03307

PATIENT
  Age: 49 Year
  Sex: Male

DRUGS (4)
  1. PIOGLITAZONE HCL [Suspect]
     Indication: TYPE 2 DIABETES MELLITUS
     Dosage: 15 MG, 15 MG, DAILY, PER ORAL
     Route: 048
     Dates: start: 20090602, end: 20100305
  2. TAB SITAGLIPTIN PHOSPHATE (ALL OTHER THERAPEUTIC PRODUCTS) [Suspect]
     Indication: TYPE 2 DIABETES MELLITUS
     Dosage: 100 MG, DAILY, PER ORAL
     Route: 048
     Dates: start: 20090602, end: 20100305
  3. PREGABALIN [Suspect]
     Dates: start: 20090630, end: 20100305
  4. TAB PLACEBO BASELINE THERAPY (PLACEBO) [Concomitant]

REACTIONS (5)
  - CARDIAC FAILURE CONGESTIVE [None]
  - LOSS OF CONSCIOUSNESS [None]
  - MYDRIASIS [None]
  - MYOCARDIAL INFARCTION [None]
  - PULSE ABSENT [None]
